FAERS Safety Report 9121538 (Version 1)
Quarter: 2013Q1

REPORT INFORMATION
  Report Type: Spontaneous
  Country: US (occurrence: US)
  Receive Date: 20130227
  Receipt Date: 20130227
  Transmission Date: 20140127
  Serious: Yes (Disabling)
  Sender: FDA-Public Use
  Company Number: US-009507513-0701USA00348

PATIENT
  Sex: Male

DRUGS (3)
  1. VYTORIN [Suspect]
     Dosage: 10-20 MG
     Route: 048
     Dates: start: 200506, end: 200605
  2. VYTORIN [Suspect]
     Dosage: 10-20 MG
     Route: 048
     Dates: end: 200712
  3. AVODART [Concomitant]
     Dosage: 0.5 MG, QD
     Route: 048

REACTIONS (1)
  - Muscular weakness [Not Recovered/Not Resolved]
